FAERS Safety Report 24031744 (Version 1)
Quarter: 2024Q2

REPORT INFORMATION
  Report Type: Spontaneous
  Country: FR (occurrence: FR)
  Receive Date: 20240629
  Receipt Date: 20240629
  Transmission Date: 20240715
  Serious: Yes (Life-Threatening, Other)
  Sender: FDA-Public Use
  Company Number: FR-AFSSAPS-NT2024000690

PATIENT
  Age: 74 Year
  Sex: Female
  Weight: 77 kg

DRUGS (1)
  1. METFORMIN [Suspect]
     Active Substance: METFORMIN HYDROCHLORIDE
     Indication: Type 2 diabetes mellitus
     Dosage: 2000 M ILLIGRAM, ONCE A DAY(1000 MG X2/D)
     Route: 048

REACTIONS (3)
  - Lactic acidosis [Recovered/Resolved]
  - Anuria [Recovered/Resolved]
  - Accidental overdose [Recovered/Resolved]

NARRATIVE: CASE EVENT DATE: 20240330
